FAERS Safety Report 8788494 (Version 5)
Quarter: 2013Q1

REPORT INFORMATION
  Report Type: Report from Study
  Country: US (occurrence: US)
  Receive Date: 20120914
  Receipt Date: 20130103
  Transmission Date: 20140127
  Serious: No
  Sender: FDA-Public Use
  Company Number: US-VERTEX PHARMACEUTICAL INC.-AE-2012-011309

PATIENT
  Age: 56 None
  Sex: Male
  Weight: 76 kg

DRUGS (6)
  1. VX-950 (TELAPREVIR) [Suspect]
     Indication: HEPATITIS C
     Dosage: 750 MG, TID
     Route: 048
     Dates: start: 20120727, end: 201210
  2. PEGASYS [Suspect]
     Indication: HEPATITIS C
     Dosage: 180 ?G, QW
     Route: 058
     Dates: start: 20120727, end: 201211
  3. RIBASPHERE [Concomitant]
     Indication: HEPATITIS C
     Dosage: 600 MG, BID
     Route: 048
     Dates: start: 20120727, end: 201211
  4. LOSARTAN POTASSIUM [Concomitant]
     Dosage: 25 MG, QD
     Route: 048
     Dates: start: 20120716
  5. GLIPIZIDE [Concomitant]
     Dosage: 5 MG, QD
     Route: 048
     Dates: start: 20120716
  6. FELODIPINE ER [Concomitant]
     Dosage: 50 MG, QD
     Route: 048
     Dates: start: 20120716

REACTIONS (7)
  - Influenza like illness [Unknown]
  - Epistaxis [Unknown]
  - Headache [Unknown]
  - Fatigue [Unknown]
  - Anaemia [Unknown]
  - Pruritus generalised [Unknown]
  - Drug ineffective [Unknown]
